FAERS Safety Report 15159616 (Version 1)
Quarter: 2018Q3

REPORT INFORMATION
  Report Type: Spontaneous
  Country: US (occurrence: US)
  Receive Date: 20180718
  Receipt Date: 20180718
  Transmission Date: 20181010
  Serious: No
  Sender: FDA-Public Use
  Company Number: US-SA-2018SA101755

PATIENT
  Sex: Male

DRUGS (1)
  1. AUBAGIO [Suspect]
     Active Substance: TERIFLUNOMIDE
     Indication: MULTIPLE SCLEROSIS
     Dosage: 14 MG,QD
     Route: 048
     Dates: start: 20180111

REACTIONS (6)
  - Fall [Unknown]
  - Balance disorder [Unknown]
  - Inner ear disorder [Unknown]
  - Vertigo positional [Unknown]
  - Hypersensitivity [Unknown]
  - Injury [Unknown]
